FAERS Safety Report 4446093-7 (Version None)
Quarter: 2004Q3

REPORT INFORMATION
  Report Type: 
  Country: None (occurrence: None)
  Receive Date: 20040910
  Receipt Date: 20040817
  Transmission Date: 20050211
  Serious: Yes (Hospitalization)
  Sender: FDA-Public Use
  Company Number: DE-AMGEN-UK087681

PATIENT
  Sex: Male

DRUGS (5)
  1. ARANESP [Suspect]
     Indication: DIALYSIS
     Dates: start: 20040330, end: 20040712
  2. NIFEDIPINE [Concomitant]
  3. SOTALOL HCL [Concomitant]
  4. MOXONIDINE [Concomitant]
  5. ASPIRIN [Concomitant]

REACTIONS (2)
  - DEMENTIA [None]
  - HYPERTENSION [None]
